FAERS Safety Report 12715479 (Version 3)
Quarter: 2016Q4

REPORT INFORMATION
  Report Type: Spontaneous
  Country: US (occurrence: US)
  Receive Date: 20160906
  Receipt Date: 20161003
  Transmission Date: 20170207
  Serious: Yes (Hospitalization)
  Sender: FDA-Public Use
  Company Number: US-JNJFOC-20160712634

PATIENT
  Sex: Male
  Weight: 83.46 kg

DRUGS (2)
  1. GABAPENTIN. [Suspect]
     Active Substance: GABAPENTIN
     Indication: PARAESTHESIA
     Route: 048
  2. LEVAQUIN [Suspect]
     Active Substance: LEVOFLOXACIN
     Indication: PNEUMONIA
     Route: 048
     Dates: start: 2003

REACTIONS (6)
  - Rash [Unknown]
  - Diarrhoea [Unknown]
  - Neuropathy peripheral [Not Recovered/Not Resolved]
  - Abdominal pain upper [Unknown]
  - Dysuria [Unknown]
  - Pyrexia [Unknown]

NARRATIVE: CASE EVENT DATE: 2003
